FAERS Safety Report 23378925 (Version 1)
Quarter: 2024Q1

REPORT INFORMATION
  Report Type: Spontaneous
  Country: RS (occurrence: RS)
  Receive Date: 20240108
  Receipt Date: 20240108
  Transmission Date: 20240410
  Serious: Yes (Death, Hospitalization)
  Sender: FDA-Public Use
  Company Number: RS-PFIZER INC-PV202300209570

PATIENT
  Age: 26 Year
  Sex: Female

DRUGS (10)
  1. DIFLUCAN [Suspect]
     Active Substance: FLUCONAZOLE
     Indication: Ecthyma
     Dosage: UNK
  2. DIFLUCAN [Suspect]
     Active Substance: FLUCONAZOLE
     Indication: Candida infection
  3. AMPHOTERICIN B [Suspect]
     Active Substance: AMPHOTERICIN B
     Indication: Ecthyma
     Dosage: UNK
  4. AMPHOTERICIN B [Suspect]
     Active Substance: AMPHOTERICIN B
     Indication: Candida infection
  5. MOXIFLOXACIN [Suspect]
     Active Substance: MOXIFLOXACIN
     Indication: Ecthyma
     Dosage: UNK
  6. MOXIFLOXACIN [Suspect]
     Active Substance: MOXIFLOXACIN
     Indication: Pseudomonas infection
  7. PREDNISONE [Suspect]
     Active Substance: PREDNISONE
     Indication: Ecthyma
     Dosage: 1 MG/KG P.D
  8. AZATHIOPRINE [Suspect]
     Active Substance: AZATHIOPRINE
     Indication: Ecthyma
     Dosage: 1.67 MG/KG, P.D
  9. HUMAN IMMUNOGLOBULIN G [Suspect]
     Active Substance: HUMAN IMMUNOGLOBULIN G
     Indication: Ecthyma
     Dosage: UNK
     Route: 042
  10. DEXAMETHASONE [Concomitant]
     Active Substance: DEXAMETHASONE
     Indication: Ecthyma
     Dosage: 1.5 MG/KG

REACTIONS (1)
  - Drug ineffective [Fatal]
